FAERS Safety Report 11159192 (Version 1)
Quarter: 2015Q2

REPORT INFORMATION
  Report Type: Spontaneous
  Country: US (occurrence: None)
  Receive Date: 20150527
  Receipt Date: 20150527
  Transmission Date: 20150821
  Serious: Yes (Other)
  Sender: FDA-Public Use
  Company Number: 1544947

PATIENT
  Age: 70 Year
  Sex: Male

DRUGS (12)
  1. NEORAL [Concomitant]
     Active Substance: CYCLOSPORINE
  2. CRESTIR (ROSUVASTATIN CALCIUM) [Concomitant]
  3. VALCYTE [Suspect]
     Active Substance: VALGANCICLOVIR HYDROCHLORIDE
     Indication: RENAL TRANSPLANT
  4. SENSIPAR (CINACALCET HYDROCHLORIDE) [Concomitant]
  5. LIPITOR [Concomitant]
     Active Substance: ATORVASTATIN CALCIUM
  6. LOSARTAN [Concomitant]
     Active Substance: LOSARTAN
  7. CIDOFOVIR. [Concomitant]
     Active Substance: CIDOFOVIR
  8. BACTRIM [Concomitant]
     Active Substance: SULFAMETHOXAZOLE\TRIMETHOPRIM
  9. IMURAN [Concomitant]
     Active Substance: AZATHIOPRINE
  10. NIFEDIPINE. [Concomitant]
     Active Substance: NIFEDIPINE
  11. LEFLUNOMIDE (LEFLUNOMIDE) [Concomitant]
     Active Substance: LEFLUNOMIDE
  12. PROGRAF [Concomitant]
     Active Substance: TACROLIMUS\TACROLIMUS ANHYDROUS

REACTIONS (1)
  - Kidney transplant rejection [None]

NARRATIVE: CASE EVENT DATE: 201407
